FAERS Safety Report 7743327-8 (Version None)
Quarter: 2011Q3

REPORT INFORMATION
  Report Type: 
  Country: None (occurrence: None)
  Receive Date: 20110909
  Receipt Date: 20110909
  Transmission Date: 20111222
  Serious: Yes (Other)
  Sender: FDA-Public Use
  Company Number: None

PATIENT
  Age: 58 Year
  Sex: Female
  Weight: 54.5 kg

DRUGS (4)
  1. CIPRO [Suspect]
     Indication: URINARY TRACT INFECTION
     Dosage: 500 MG. TWICE A DAY BY MOUTH
     Route: 048
     Dates: start: 20110803
  2. CIPRO [Suspect]
     Indication: GENITAL DISORDER FEMALE
     Dosage: 500 MG. TWICE A DAY BY MOUTH
     Route: 048
     Dates: start: 20110803
  3. CIPRO [Suspect]
     Indication: URINARY TRACT INFECTION
     Dosage: 500 MG. TWICE A DAY BY MOUTH
     Route: 048
     Dates: start: 20110804
  4. CIPRO [Suspect]
     Indication: GENITAL DISORDER FEMALE
     Dosage: 500 MG. TWICE A DAY BY MOUTH
     Route: 048
     Dates: start: 20110804

REACTIONS (6)
  - NEURALGIA [None]
  - PAIN IN EXTREMITY [None]
  - PARAESTHESIA [None]
  - BURNING SENSATION [None]
  - ERYTHEMA [None]
  - INCREASED TENDENCY TO BRUISE [None]
